FAERS Safety Report 13408123 (Version 1)
Quarter: 2017Q2

REPORT INFORMATION
  Report Type: Spontaneous
  Country: AU (occurrence: AU)
  Receive Date: 20170406
  Receipt Date: 20170406
  Transmission Date: 20170830
  Serious: Yes (Other)
  Sender: FDA-Public Use
  Company Number: AU-009507513-1703AUS011813

PATIENT
  Sex: Female

DRUGS (2)
  1. ETONOGESTREL IMPLANT- UNKNOWN [Suspect]
     Active Substance: ETONOGESTREL
     Dosage: 1 ROD
  2. ETONOGESTREL IMPLANT- UNKNOWN [Suspect]
     Active Substance: ETONOGESTREL
     Dosage: 1 ROD
     Route: 059

REACTIONS (3)
  - Complication associated with device [Not Recovered/Not Resolved]
  - Surgery [Unknown]
  - Nerve injury [Unknown]
